FAERS Safety Report 8775454 (Version 1)
Quarter: 2012Q4

REPORT INFORMATION
  Report Type: Report from Study
  Country: BR (occurrence: BR)
  Receive Date: 20120911
  Receipt Date: 20120911
  Transmission Date: 20130627
  Serious: Yes (Other)
  Sender: FDA-Public Use
  Company Number: BR-ROCHE-1104762

PATIENT
  Sex: Female
  Weight: 55 kg

DRUGS (6)
  1. MABTHERA [Suspect]
     Indication: RHEUMATOID ARTHRITIS
     Route: 065
     Dates: start: 20110627, end: 20120224
  2. PARIET [Concomitant]
  3. STATIN (UNK INGREDIENTS) [Concomitant]
  4. VITAMIN D [Concomitant]
  5. SELOZOK [Concomitant]
  6. PROMETHAZINE [Concomitant]
     Indication: PREMEDICATION

REACTIONS (5)
  - Glaucoma [Unknown]
  - Optic nerve disorder [Unknown]
  - Drug hypersensitivity [Recovered/Resolved]
  - Low density lipoprotein decreased [Unknown]
  - Drug hypersensitivity [Recovered/Resolved]
